FAERS Safety Report 13214312 (Version 2)
Quarter: 2017Q2

REPORT INFORMATION
  Report Type: Report from Study
  Country: None (occurrence: FR)
  Receive Date: 20170210
  Receipt Date: 20170502
  Transmission Date: 20170830
  Serious: Yes (Other)
  Sender: FDA-Public Use
  Company Number: FR-ABBVIE-16P-056-1825126-00

PATIENT
  Age: 70 Year
  Sex: Male

DRUGS (11)
  1. VENETOCLAX [Suspect]
     Active Substance: VENETOCLAX
     Route: 048
     Dates: start: 20161221, end: 20161227
  2. HUMAN IMMUNOGLOBULIN (GAMMANORM) [Concomitant]
     Indication: PROPHYLAXIS
     Route: 058
  3. VENETOCLAX [Suspect]
     Active Substance: VENETOCLAX
     Route: 048
     Dates: start: 20161207, end: 20161213
  4. AMLODIPINE (AMLOR) [Concomitant]
     Indication: PRODUCT USED FOR UNKNOWN INDICATION
     Dates: start: 20130802
  5. VENETOCLAX [Suspect]
     Active Substance: VENETOCLAX
     Route: 048
     Dates: start: 20161214, end: 20161220
  6. VENETOCLAX [Suspect]
     Active Substance: VENETOCLAX
     Indication: CHRONIC LYMPHOCYTIC LEUKAEMIA
     Route: 048
     Dates: start: 20161130, end: 20161206
  7. VALACICLOVIR (ZELITREX) [Concomitant]
     Indication: PRODUCT USED FOR UNKNOWN INDICATION
     Dates: start: 20130101
  8. VENETOCLAX [Suspect]
     Active Substance: VENETOCLAX
     Route: 048
     Dates: start: 20161228
  9. ALLOPURINOL (ZYLORIC) [Concomitant]
     Indication: PRODUCT USED FOR UNKNOWN INDICATION
     Route: 048
     Dates: start: 20130802
  10. IRBESARTAN (APROVEL) [Concomitant]
     Indication: PRODUCT USED FOR UNKNOWN INDICATION
     Route: 048
     Dates: start: 20130802
  11. TRIMETHOPRIME/SULFAMETHOXAZOLE (BACTRIM) [Concomitant]
     Indication: PRODUCT USED FOR UNKNOWN INDICATION
     Dates: start: 20130101

REACTIONS (2)
  - Blood uric acid increased [Unknown]
  - Blood phosphorus increased [Recovered/Resolved]

NARRATIVE: CASE EVENT DATE: 20161227
